FAERS Safety Report 8502911-4 (Version None)
Quarter: 2012Q3

REPORT INFORMATION
  Report Type: 
  Country: None (occurrence: None)
  Receive Date: 20120711
  Receipt Date: 20120705
  Transmission Date: 20120928
  Serious: Yes (Other)
  Sender: FDA-Public Use
  Company Number: US-PFIZER INC-2012147527

PATIENT
  Sex: Female
  Weight: 67.12 kg

DRUGS (8)
  1. ACETYLSALICYLIC ACID [Concomitant]
     Dosage: 81 MG, UNK
  2. LEVOTHYROXINE [Concomitant]
     Dosage: 100 UG, UNK
  3. PLAVIX [Concomitant]
     Dosage: 75 MG, UNK
  4. ZETIA [Concomitant]
     Dosage: 10 MG, UNK
  5. LIPITOR [Suspect]
     Indication: BLOOD CHOLESTEROL INCREASED
     Dosage: 20 MG, 1X/DAY
     Route: 048
  6. ZYVOX [Suspect]
     Indication: INFECTION
     Dosage: 600 MG, UNK
     Route: 042
     Dates: start: 20120201, end: 20120201
  7. ZYVOX [Suspect]
     Indication: MALAISE
  8. METOPROLOL [Concomitant]
     Dosage: 100 MG, UNK

REACTIONS (5)
  - MALAISE [None]
  - CARDIAC VALVE DISEASE [None]
  - CORONARY ARTERY OCCLUSION [None]
  - INFECTION [None]
  - RENAL DISORDER [None]
